FAERS Safety Report 8455921-X (Version None)
Quarter: 2012Q2

REPORT INFORMATION
  Report Type: 
  Country: None (occurrence: None)
  Receive Date: 20120621
  Receipt Date: 20120611
  Transmission Date: 20120825
  Serious: Yes (Congenital Anomaly, Other)
  Sender: FDA-Public Use
  Company Number: JP-ROCHE-1065888

PATIENT
  Age: 54 Year
  Sex: Female

DRUGS (3)
  1. PREDNISOLONE [Concomitant]
     Route: 048
     Dates: start: 20090501
  2. NEORAL [Concomitant]
     Route: 048
     Dates: start: 20090501
  3. ACTEMRA [Suspect]
     Indication: STILL'S DISEASE ADULT ONSET
     Route: 041
     Dates: start: 20110901, end: 20120401

REACTIONS (2)
  - ANTINUCLEAR ANTIBODY POSITIVE [None]
  - DOUBLE STRANDED DNA ANTIBODY [None]
